FAERS Safety Report 4289449-8 (Version None)
Quarter: 2004Q1

REPORT INFORMATION
  Report Type: 
  Country: None (occurrence: None)
  Receive Date: 20040203
  Receipt Date: 20030813
  Transmission Date: 20041129
  Serious: Yes (Life-Threatening, Hospitalization, Other)
  Sender: FDA-Public Use
  Company Number: 200322374BWH

PATIENT
  Age: 50 Year
  Sex: Male
  Weight: 90.7194 kg

DRUGS (3)
  1. AVELOX [Suspect]
     Indication: ROCKY MOUNTAIN SPOTTED FEVER
     Dosage: 400 MG, ONCE, ORAL
     Route: 048
     Dates: start: 20030629
  2. AVELOX [Suspect]
     Indication: SINUSITIS
     Dosage: 400 MG, ONCE, ORAL
     Route: 048
     Dates: start: 20030629
  3. LEVAQUIN [Concomitant]

REACTIONS (6)
  - ANAPHYLACTIC REACTION [None]
  - APHONIA [None]
  - DYSPNOEA [None]
  - ERYTHEMA [None]
  - EYE SWELLING [None]
  - WHEEZING [None]
